FAERS Safety Report 5384022-2 (Version None)
Quarter: 2007Q3

REPORT INFORMATION
  Report Type: 
  Country: None (occurrence: None)
  Receive Date: 20070711
  Receipt Date: 20070703
  Transmission Date: 20080115
  Serious: Yes (Other)
  Sender: FDA-Public Use
  Company Number: US-ROCHE-486145

PATIENT
  Age: 51 Year
  Sex: Female

DRUGS (4)
  1. PEGASYS [Suspect]
     Dosage: REPORTED PATIENT ON 180 MCG / WEEK.
     Route: 065
     Dates: start: 20070202
  2. RIBAPAK [Suspect]
     Dosage: TOOK 600MG IN THE MORNING AND 400MG IN THE EVENING
     Route: 048
     Dates: start: 20070202
  3. DEXTROSTAT [Concomitant]
     Dosage: NOT TAKEN REGULARLY
     Route: 065
  4. PERCOCET [Concomitant]
     Indication: MIGRAINE
     Dosage: TAKEN OCCASIONALLY
     Route: 065

REACTIONS (14)
  - ABDOMINAL PAIN [None]
  - ALOPECIA [None]
  - ANAEMIA [None]
  - CRYING [None]
  - DEPRESSION [None]
  - DYSPNOEA [None]
  - FATIGUE [None]
  - INSOMNIA [None]
  - PALPITATIONS [None]
  - PHARYNGOLARYNGEAL PAIN [None]
  - PLATELET COUNT DECREASED [None]
  - SKIN DISCOLOURATION [None]
  - THROMBOSIS [None]
  - WHITE BLOOD CELL COUNT DECREASED [None]
